FAERS Safety Report 25784732 (Version 1)
Quarter: 2025Q3

REPORT INFORMATION
  Report Type: Spontaneous
  Country: JP (occurrence: JP)
  Receive Date: 20250910
  Receipt Date: 20250910
  Transmission Date: 20251021
  Serious: Yes (Other)
  Sender: IDORSIA PHARMACEUTICALS
  Company Number: JP-IDORSIA-011678-2025-JP

PATIENT
  Sex: Female

DRUGS (2)
  1. QUVIVIQ [Suspect]
     Active Substance: DARIDOREXANT
     Indication: Product used for unknown indication
     Dosage: 2 DOSAGE FORM OF 25MG, QD
     Route: 048
  2. QUVIVIQ [Suspect]
     Active Substance: DARIDOREXANT
     Dosage: 25 MG, QD
     Route: 048

REACTIONS (4)
  - Foreign body in throat [Unknown]
  - Dysphagia [Unknown]
  - Somnolence [Unknown]
  - Drug ineffective [Unknown]
